FAERS Safety Report 23198769 (Version 7)
Quarter: 2025Q1

REPORT INFORMATION
  Report Type: Spontaneous
  Country: US (occurrence: US)
  Receive Date: 20231117
  Receipt Date: 20250122
  Transmission Date: 20250408
  Serious: Yes (Other)
  Sender: PFIZER
  Company Number: US-PFIZER INC-PV202300187476

PATIENT
  Age: 75 Year
  Sex: Female

DRUGS (25)
  1. IBRANCE [Suspect]
     Active Substance: PALBOCICLIB
     Indication: Breast cancer female
     Route: 048
     Dates: start: 20231122
  2. IBRANCE [Suspect]
     Active Substance: PALBOCICLIB
     Route: 048
     Dates: start: 20231122
  3. IBRANCE [Suspect]
     Active Substance: PALBOCICLIB
     Route: 048
     Dates: start: 20240817
  4. ASCORBIC [Concomitant]
  5. CALCIUM CARBONATE [Concomitant]
     Active Substance: CALCIUM CARBONATE
  6. DIAZEPAM [Concomitant]
     Active Substance: DIAZEPAM
  7. FASLODEX [Concomitant]
     Active Substance: FULVESTRANT
  8. FISH OIL [Concomitant]
     Active Substance: FISH OIL
  9. HYPROMELLOSES [Concomitant]
     Active Substance: HYPROMELLOSES
  10. KETOCONAZOLE [Concomitant]
     Active Substance: KETOCONAZOLE
  11. LETROZOLE [Concomitant]
     Active Substance: LETROZOLE
  12. LISINOPRIL [Concomitant]
     Active Substance: LISINOPRIL
  13. LISINOPRIL [Concomitant]
     Active Substance: LISINOPRIL
  14. LORAZEPAM [Concomitant]
     Active Substance: LORAZEPAM
  15. MAGNESIUM [Concomitant]
     Active Substance: MAGNESIUM
  16. MAGNESIUM SULFATE [Concomitant]
     Active Substance: MAGNESIUM SULFATE
  17. NYSTATIN [Concomitant]
     Active Substance: NYSTATIN
  18. ONDANSETRON [Concomitant]
     Active Substance: ONDANSETRON
  19. PAROXETINE [Concomitant]
     Active Substance: PAROXETINE
  20. PREDNISOLONE [Concomitant]
     Active Substance: PREDNISOLONE
     Route: 047
  21. ROSUVASTATIN [Concomitant]
     Active Substance: ROSUVASTATIN
  22. ROSUVASTATIN [Concomitant]
     Active Substance: ROSUVASTATIN
  23. VITAMIN C [Concomitant]
     Active Substance: ASCORBIC ACID
  24. VITAMIN D3 [Concomitant]
     Active Substance: CHOLECALCIFEROL
  25. VITAMIN D3 [Concomitant]
     Active Substance: CHOLECALCIFEROL

REACTIONS (7)
  - Eye operation [Unknown]
  - Neutropenia [Not Recovered/Not Resolved]
  - Fatigue [Not Recovered/Not Resolved]
  - Hot flush [Not Recovered/Not Resolved]
  - Headache [Not Recovered/Not Resolved]
  - White blood cell count decreased [Unknown]
  - Pain [Unknown]

NARRATIVE: CASE EVENT DATE: 20231101
